FAERS Safety Report 7153837-2 (Version None)
Quarter: 2010Q4

REPORT INFORMATION
  Report Type: 
  Country: None (occurrence: None)
  Receive Date: 20101213
  Receipt Date: 20100407
  Transmission Date: 20110411
  Serious: No
  Sender: FDA-Public Use
  Company Number: US-ABBOTT-10P-163-0637936-00

PATIENT
  Sex: Female
  Weight: 163.44 kg

DRUGS (7)
  1. MERIDIA [Suspect]
     Indication: WEIGHT CONTROL
     Dates: start: 20100315, end: 20100401
  2. BENICAR [Concomitant]
     Indication: HYPERTENSION
  3. METFORMIN HCL [Concomitant]
     Indication: DIABETES MELLITUS
  4. LEVOTHYROXINE [Concomitant]
     Indication: HYPOTHYROIDISM
  5. MULTIPLE VITAMINS [Concomitant]
     Indication: VITAMIN SUPPLEMENTATION
  6. VITAMIN D [Concomitant]
     Indication: VITAMIN SUPPLEMENTATION
  7. VITAMIN B-12 [Concomitant]
     Indication: VITAMIN SUPPLEMENTATION

REACTIONS (3)
  - DRUG INEFFECTIVE [None]
  - DRY MOUTH [None]
  - THIRST [None]
